FAERS Safety Report 20012898 (Version 2)
Quarter: 2021Q4

REPORT INFORMATION
  Report Type: Spontaneous
  Country: JP (occurrence: None)
  Receive Date: 20211029
  Receipt Date: 20211223
  Transmission Date: 20220303
  Serious: Yes (Hospitalization)
  Sender: FDA-Public Use
  Company Number: 2021A785861

PATIENT
  Age: 82 Year
  Sex: Male
  Weight: 63 kg

DRUGS (20)
  1. DAPAGLIFLOZIN [Suspect]
     Active Substance: DAPAGLIFLOZIN
     Indication: Type 2 diabetes mellitus
     Route: 048
     Dates: end: 20210808
  2. OPDIVO [Suspect]
     Active Substance: NIVOLUMAB
     Indication: Pleural mesothelioma
     Dosage: DOSE UNKNOWN
     Route: 041
     Dates: start: 20210729
  3. YERVOY [Suspect]
     Active Substance: IPILIMUMAB
     Indication: Pleural mesothelioma
     Dosage: DOSE UNKNOWN
     Route: 041
     Dates: start: 20210729
  4. ACETAMINOPHEN\TRAMADOL HYDROCHLORIDE [Concomitant]
     Active Substance: ACETAMINOPHEN\TRAMADOL HYDROCHLORIDE
     Route: 048
  5. MICARDIS [Concomitant]
     Active Substance: TELMISARTAN
     Route: 048
  6. ADALAT CC [Concomitant]
     Active Substance: NIFEDIPINE
     Route: 048
  7. TSUMURA KAKKONTO EXTRACT GRANULES FOR ETHICAL USE [Concomitant]
     Route: 048
  8. SILODOSIN OD [Concomitant]
     Route: 048
  9. BETHANECHOL CHLORIDE [Concomitant]
     Active Substance: BETHANECHOL CHLORIDE
     Dosage: 1G A DAY
     Route: 048
  10. RABEPRAZOLE SODIUM [Concomitant]
     Active Substance: RABEPRAZOLE SODIUM
     Route: 048
  11. DIETARY SUPPLEMENT\PROBIOTICS [Concomitant]
     Active Substance: DIETARY SUPPLEMENT\PROBIOTICS
     Route: 048
  12. OXINORM [Concomitant]
     Route: 048
  13. BISOPROLOL FUMARATE [Concomitant]
     Active Substance: BISOPROLOL FUMARATE
     Route: 048
  14. EFINACONAZOLE [Concomitant]
     Active Substance: EFINACONAZOLE
     Dosage: DOSE UNKNOWN
     Route: 062
  15. VOALLA:CREAM [Concomitant]
     Dosage: DOSE UNKNOWN
     Route: 062
  16. PANDEL [Concomitant]
     Active Substance: HYDROCORTISONE PROBUTATE
     Dosage: DOSE UNKNOWN
     Route: 062
  17. CYANOCOBALAMIN [Concomitant]
     Active Substance: CYANOCOBALAMIN
     Dosage: DOSE UNKNOWN, BOTH EYES
     Route: 047
  18. PIRENOXINE [Concomitant]
     Active Substance: PIRENOXINE
     Dosage: DOSE UNKNOWN, BOTH EYES
     Route: 047
  19. ALPHAGAN P [Concomitant]
     Active Substance: BRIMONIDINE TARTRATE
     Dosage: DOSE UNKNOWN, RIGHT EYE
     Route: 047
  20. SENNOSIDES [Concomitant]
     Active Substance: SENNOSIDES
     Dosage: WHEN CONSTIPATED
     Route: 048

REACTIONS (3)
  - Fulminant type 1 diabetes mellitus [Recovering/Resolving]
  - Shock [Recovered/Resolved]
  - Sepsis [Recovered/Resolved]

NARRATIVE: CASE EVENT DATE: 20210808
